FAERS Safety Report 4497045-2 (Version None)
Quarter: 2004Q4

REPORT INFORMATION
  Report Type: 
  Country: None (occurrence: None)
  Receive Date: 20041108
  Receipt Date: 20040922
  Transmission Date: 20050328
  Serious: Yes (Hospitalization, Other)
  Sender: FDA-Public Use
  Company Number: US_0407104110

PATIENT
  Age: 57 Year
  Sex: Male
  Weight: 92 kg

DRUGS (21)
  1. PROZAC [Suspect]
     Indication: DEPRESSION
     Dosage: 40 MG DAY
  2. ZYPREXA [Suspect]
     Indication: AGITATION
     Dosage: 20 MG/1 AT BEDTIME
     Dates: start: 20040201, end: 20040501
  3. CLONAZEPAM [Concomitant]
  4. FLUTICASONE PROPIONATE [Concomitant]
  5. GUAIFENESIN (GUAIFENESIN [Concomitant]
  6. HYDROCHLOROTHIAZIDE [Concomitant]
  7. LANSOPRAZOLE [Concomitant]
  8. LISINOPRIL [Concomitant]
  9. MORPHINE SULFATE [Concomitant]
  10. NAPROXEN SODIUM [Concomitant]
  11. SILDENAFIL CITRATE [Concomitant]
  12. SIMVASTATIN ^ORIFARM^ (SIMVASTATIN RATIOPHARM) [Concomitant]
  13. EFFEXOR [Concomitant]
  14. VENLAFAXINE [Concomitant]
  15. RABEPRAZOLE SODIUM [Concomitant]
  16. LOVASTATIN [Concomitant]
  17. PERCOCET [Concomitant]
  18. TRAMADOL [Concomitant]
  19. MOTRIN [Concomitant]
  20. OMEPRAZOLE [Concomitant]
  21. ALBUTEROL [Concomitant]

REACTIONS (64)
  - ABDOMINAL DISCOMFORT [None]
  - ABDOMINAL HERNIA [None]
  - ABNORMAL BEHAVIOUR [None]
  - ACCIDENTAL OVERDOSE [None]
  - AGGRESSION [None]
  - ANGER [None]
  - ANIMAL BITE [None]
  - ANKLE OPERATION [None]
  - ARTHRALGIA [None]
  - ARTHROPATHY [None]
  - ASTHENIA [None]
  - BACK PAIN [None]
  - BRONCHITIS [None]
  - BRONCHITIS ACUTE [None]
  - BURNING SENSATION [None]
  - BURSITIS [None]
  - CELLULITIS [None]
  - COLONIC POLYP [None]
  - COMPLETED SUICIDE [None]
  - DEPRESSION [None]
  - DIARRHOEA [None]
  - DIARRHOEA HAEMORRHAGIC [None]
  - DRUG INEFFECTIVE [None]
  - EPICONDYLITIS [None]
  - ERECTILE DYSFUNCTION [None]
  - ERYTHEMA [None]
  - FALL [None]
  - FEELING ABNORMAL [None]
  - FEELING DRUNK [None]
  - GUN SHOT WOUND [None]
  - HEAD INJURY [None]
  - HEADACHE [None]
  - HYPERHIDROSIS [None]
  - JOINT SWELLING [None]
  - KNEE ARTHROPLASTY [None]
  - LACERATION [None]
  - LETHARGY [None]
  - LIP PAIN [None]
  - LOCALISED OSTEOARTHRITIS [None]
  - LOSS OF CONSCIOUSNESS [None]
  - NAUSEA [None]
  - OEDEMA [None]
  - PAIN [None]
  - PAIN OF SKIN [None]
  - PNEUMONIA [None]
  - PRURITUS [None]
  - RECTAL HAEMORRHAGE [None]
  - ROTATOR CUFF REPAIR [None]
  - ROTATOR CUFF SYNDROME [None]
  - SELF-INJURIOUS IDEATION [None]
  - SEPTOPLASTY [None]
  - SINUSITIS [None]
  - SOMNOLENCE [None]
  - STRESS SYMPTOMS [None]
  - SUICIDAL IDEATION [None]
  - SUICIDE ATTEMPT [None]
  - TACHYCARDIA [None]
  - TENDONITIS [None]
  - TOOTH DISORDER [None]
  - TREATMENT NONCOMPLIANCE [None]
  - VIRAL UPPER RESPIRATORY TRACT INFECTION [None]
  - VOMITING [None]
  - WEIGHT INCREASED [None]
  - XANTHOGRANULOMA [None]
